FAERS Safety Report 7503001-X (Version None)
Quarter: 2011Q2

REPORT INFORMATION
  Report Type: 
  Country: None (occurrence: None)
  Receive Date: 20110525
  Receipt Date: 20100927
  Transmission Date: 20111010
  Serious: No
  Sender: FDA-Public Use
  Company Number: US-NOVEN-ALL1-2010-05090

PATIENT
  Sex: Female
  Weight: 42.63 kg

DRUGS (3)
  1. DAYTRANA [Suspect]
     Dosage: UNK MG, 1X/DAY:QD
     Route: 062
     Dates: end: 20100101
  2. SEROQUEL [Concomitant]
     Dosage: UNK MG, UNKNOWN
     Route: 048
  3. DEPAKOTE [Concomitant]
     Dosage: UNK MG, UNKNOWN
     Route: 048

REACTIONS (1)
  - DRUG INEFFECTIVE [None]
